FAERS Safety Report 20431091 (Version 2)
Quarter: 2022Q3

REPORT INFORMATION
  Report Type: Spontaneous
  Country: CL (occurrence: CL)
  Receive Date: 20220204
  Receipt Date: 20220812
  Transmission Date: 20221026
  Serious: No
  Sender: FDA-Public Use
  Company Number: CL-PFIZER INC-202200129697

PATIENT
  Age: 13 Year
  Sex: Male

DRUGS (1)
  1. GENOTROPIN [Suspect]
     Active Substance: SOMATROPIN
     Dosage: UNK

REACTIONS (4)
  - Incorrect dose administered by device [Unknown]
  - Injection site induration [Unknown]
  - Device malfunction [Unknown]
  - Wrong technique in device usage process [Unknown]
